FAERS Safety Report 4325302-9 (Version None)
Quarter: 2004Q1

REPORT INFORMATION
  Report Type: 
  Country: None (occurrence: None)
  Receive Date: 20040323
  Receipt Date: 20040317
  Transmission Date: 20041129
  Serious: Yes (Death)
  Sender: FDA-Public Use
  Company Number: 2002106628IT

PATIENT
  Age: 65 Year
  Sex: Female

DRUGS (7)
  1. CAMPTOSAR [Suspect]
     Indication: COLON CANCER
     Dosage: 270 MG, CYCLE 3, IV
     Route: 042
     Dates: start: 20020429, end: 20020429
  2. LEUCOVORIN CALCIUM [Suspect]
     Indication: COLON CANCER
     Dosage: 300 MG, CYCLE 3; IV
     Route: 042
     Dates: start: 20020429, end: 20020430
  3. FLUOROURACIL [Suspect]
     Indication: COLON CANCER
     Dosage: 1200 MG, CYCLE 3; IV (SEE IMAGE) (REGIMEN #2)
     Route: 042
     Dates: start: 20020429, end: 20020430
  4. FLUOROURACIL [Suspect]
     Indication: COLON CANCER
     Dosage: 1200 MG, CYCLE 3; IV (SEE IMAGE) (REGIMEN #2)
     Route: 042
     Dates: start: 20020429, end: 20020430
  5. ZOFRAN [Concomitant]
  6. RANITIDINE [Concomitant]
  7. ATROPINE [Concomitant]

REACTIONS (5)
  - CIRCULATORY COLLAPSE [None]
  - DIARRHOEA [None]
  - HYPOTENSION [None]
  - SEPTIC SHOCK [None]
  - WHITE BLOOD CELL COUNT DECREASED [None]
